FAERS Safety Report 23001282 (Version 9)
Quarter: 2024Q2

REPORT INFORMATION
  Report Type: Spontaneous
  Country: US (occurrence: US)
  Receive Date: 20230928
  Receipt Date: 20240418
  Transmission Date: 20240716
  Serious: No
  Sender: FDA-Public Use
  Company Number: US-Blueprint Medicines Corporation-SP-US-2023-001447

PATIENT
  Sex: Male

DRUGS (5)
  1. AYVAKIT [Suspect]
     Active Substance: AVAPRITINIB
     Indication: Advanced systemic mastocytosis
     Route: 048
     Dates: start: 20230822
  2. AYVAKIT [Suspect]
     Active Substance: AVAPRITINIB
     Indication: Advanced systemic mastocytosis
     Route: 048
     Dates: start: 20230822
  3. AYVAKIT [Suspect]
     Active Substance: AVAPRITINIB
     Route: 065
  4. AYVAKIT [Suspect]
     Active Substance: AVAPRITINIB
     Route: 065
     Dates: start: 20240122
  5. AYVAKIT [Suspect]
     Active Substance: AVAPRITINIB
     Route: 065
     Dates: start: 20240122

REACTIONS (17)
  - Haemoglobin abnormal [Not Recovered/Not Resolved]
  - Platelet count abnormal [Not Recovered/Not Resolved]
  - Tryptase [Not Recovered/Not Resolved]
  - Blood bilirubin abnormal [Not Recovered/Not Resolved]
  - Tremor [Unknown]
  - Cognitive disorder [Unknown]
  - Oedema [Not Recovered/Not Resolved]
  - Swelling [Unknown]
  - Peripheral swelling [Not Recovered/Not Resolved]
  - Ocular icterus [Not Recovered/Not Resolved]
  - Weight increased [Unknown]
  - Dyspepsia [Recovered/Resolved]
  - Splenomegaly [Not Recovered/Not Resolved]
  - Abnormal dreams [Unknown]
  - Ageusia [Unknown]
  - Abdominal distension [Not Recovered/Not Resolved]
  - Laboratory test abnormal [Recovering/Resolving]
